FAERS Safety Report 4747176-4 (Version None)
Quarter: 2005Q3

REPORT INFORMATION
  Report Type: 
  Country: None (occurrence: None)
  Receive Date: 20050815
  Receipt Date: 20050802
  Transmission Date: 20060218
  Serious: Yes (Hospitalization)
  Sender: FDA-Public Use
  Company Number: 2005BI011610

PATIENT
  Age: 61 Year
  Sex: Female
  Weight: 54.4316 kg

DRUGS (2)
  1. AVONEX [Suspect]
     Indication: MULTIPLE SCLEROSIS
     Dosage: 30 UG; QW; IM
     Route: 030
     Dates: start: 20040201, end: 20050301
  2. AVONEX [Suspect]
     Indication: MULTIPLE SCLEROSIS
     Dosage: 22.5 UG; QW; IM
     Route: 030
     Dates: start: 20050301

REACTIONS (3)
  - BILE DUCT OBSTRUCTION [None]
  - INTESTINAL FUNCTIONAL DISORDER [None]
  - ORGAN FAILURE [None]
